FAERS Safety Report 6380036-4 (Version None)
Quarter: 2009Q3

REPORT INFORMATION
  Report Type: 
  Country: None (occurrence: None)
  Receive Date: 20090928
  Receipt Date: 20090914
  Transmission Date: 20100115
  Serious: Yes (Other)
  Sender: FDA-Public Use
  Company Number: CA-GENENTECH-290971

PATIENT
  Sex: Female
  Weight: 138.32 kg

DRUGS (2)
  1. XOLAIR [Suspect]
     Indication: ASTHMA
     Dosage: 300 MG, UNK
     Route: 058
     Dates: start: 20080129
  2. XOLAIR [Suspect]
     Dosage: 300 MG, UNK
     Route: 058
     Dates: start: 20090817

REACTIONS (5)
  - ARTERIAL OCCLUSIVE DISEASE [None]
  - CHEST DISCOMFORT [None]
  - CONSTIPATION [None]
  - DYSPNOEA [None]
  - HYPERSENSITIVITY [None]
